FAERS Safety Report 4828710-2 (Version None)
Quarter: 2005Q4

REPORT INFORMATION
  Report Type: 
  Country: None (occurrence: None)
  Receive Date: 20051115
  Receipt Date: 20050914
  Transmission Date: 20060501
  Serious: Yes (Hospitalization, Other)
  Sender: FDA-Public Use
  Company Number: US-MERCK-0509USA01894

PATIENT
  Age: 41 Year
  Sex: Female

DRUGS (8)
  1. CANCIDAS [Suspect]
     Indication: PELVIC ABSCESS
     Route: 042
     Dates: start: 20050901, end: 20050901
  2. CANCIDAS [Suspect]
     Route: 042
     Dates: start: 20050903, end: 20050909
  3. CANCIDAS [Suspect]
     Indication: FUNGAL INFECTION
     Route: 042
     Dates: start: 20050901, end: 20050901
  4. CANCIDAS [Suspect]
     Route: 042
     Dates: start: 20050903, end: 20050909
  5. PRIMAXIN [Suspect]
     Indication: INFECTION
     Route: 042
     Dates: start: 20050901, end: 20050906
  6. INVANZ [Concomitant]
     Route: 042
     Dates: start: 20050901
  7. TORADOL [Suspect]
     Route: 065
  8. IBUPROFEN [Concomitant]
     Indication: PAIN
     Route: 048
     Dates: start: 20050815, end: 20050906

REACTIONS (2)
  - CONVULSION [None]
  - RENAL FAILURE [None]
